FAERS Safety Report 9798854 (Version 1)
Quarter: 2014Q1

REPORT INFORMATION
  Report Type: Spontaneous
  Country: US (occurrence: None)
  Receive Date: 20140103
  Receipt Date: 20140103
  Transmission Date: 20141002
  Serious: Yes (Disabling, Other)
  Sender: FDA-Public Use
  Company Number: None

PATIENT
  Age: 64 Year
  Sex: Female
  Weight: 67.13 kg

DRUGS (1)
  1. RECLAST [Suspect]
     Route: 042
     Dates: start: 201001, end: 20110114

REACTIONS (1)
  - Renal failure chronic [None]
